FAERS Safety Report 18814415 (Version 1)
Quarter: 2021Q1

REPORT INFORMATION
  Report Type: Spontaneous
  Country: NL (occurrence: NL)
  Receive Date: 20210201
  Receipt Date: 20210201
  Transmission Date: 20210419
  Serious: Yes (Hospitalization)
  Sender: FDA-Public Use
  Company Number: NL-TEVA-2021-NL-1873748

PATIENT
  Age: 75 Year
  Sex: Female
  Weight: 70 kg

DRUGS (5)
  1. FLUVASTATINE CAPSULE 40MG / BRAND NAME NOT SPECIFIED [Suspect]
     Active Substance: FLUVASTATIN SODIUM
     Indication: HYPERCHOLESTEROLAEMIA
     Dates: start: 2020, end: 20201115
  2. MAGNESIUM [Concomitant]
     Active Substance: MAGNESIUM
     Dosage: 1 DOSAGE FORMS DAILY; THERAPY START DATE AND END DATE : ASKED BUT UNKNOWN
  3. RABEPRAZOL TABLET MSR 20MG / BRAND NAME NOT SPECIFIED [Concomitant]
     Dosage: THERAPY START DATE AND END DATE : ASKED BUT UNKNOWN
  4. CLOPIDOGREL TABLET   75MG / BRAND NAME NOT SPECIFIED [Concomitant]
     Active Substance: CLOPIDOGREL BISULFATE
     Dosage: 75 MILLIGRAM DAILY; THERAPY START DATE AND END DATE : ASKED BUT UNKNOWN
  5. HYDROXOCOBALAMINE / BRAND NAME NOT SPECIFIED [Concomitant]
     Dosage: THERAPY START DATE AND END DATE : ASKED BUT UNKNOWN

REACTIONS (3)
  - Fall [Recovered/Resolved]
  - Fatigue [Recovered/Resolved]
  - Dizziness [Recovered/Resolved]

NARRATIVE: CASE EVENT DATE: 20200218
